FAERS Safety Report 25943111 (Version 1)
Quarter: 2025Q4

REPORT INFORMATION
  Report Type: Spontaneous
  Country: CA (occurrence: CA)
  Receive Date: 20251021
  Receipt Date: 20251021
  Transmission Date: 20260117
  Serious: Yes (Other)
  Sender: TEVA
  Company Number: CA-TEVA-VS-3382771

PATIENT
  Age: 14 Year
  Sex: Male
  Weight: 37 kg

DRUGS (1)
  1. VINCRISTINE SULFATE [Suspect]
     Active Substance: VINCRISTINE SULFATE
     Indication: Rhabdomyosarcoma
     Dosage: DOSE FORM: NOT SPECIFIED, FREQUENCY: ONCE
     Route: 042

REACTIONS (1)
  - Neuropathy peripheral [Unknown]
